FAERS Safety Report 17159879 (Version 1)
Quarter: 2019Q4

REPORT INFORMATION
  Report Type: Spontaneous
  Country: SE (occurrence: SE)
  Receive Date: 20191216
  Receipt Date: 20191216
  Transmission Date: 20200122
  Serious: Yes (Hospitalization, Other)
  Sender: FDA-Public Use
  Company Number: SE-SA-2019SA345216

PATIENT
  Sex: Female

DRUGS (2)
  1. MELATONIN [Suspect]
     Active Substance: MELATONIN
     Dosage: UNK UNK, UNK
     Route: 065
     Dates: start: 20180121, end: 20180121
  2. PROPAVAN [Suspect]
     Active Substance: PROPIOMAZINE
     Dosage: UNK UNK, UNK
     Route: 048
     Dates: start: 20180121, end: 20180121

REACTIONS (2)
  - Intentional overdose [Unknown]
  - Intentional self-injury [Unknown]

NARRATIVE: CASE EVENT DATE: 20180121
